FAERS Safety Report 4417520-6 (Version None)
Quarter: 2004Q2

REPORT INFORMATION
  Report Type: 
  Country: None (occurrence: None)
  Receive Date: 20040625
  Receipt Date: 20040504
  Transmission Date: 20050107
  Serious: Yes (Life-Threatening, Hospitalization)
  Sender: FDA-Public Use
  Company Number: 206023

PATIENT
  Age: 52 Year
  Sex: Male

DRUGS (5)
  1. AVASTIN [Suspect]
     Indication: COLON CANCER
     Dosage: 5 MG/KG, INTRAVENOUS
     Route: 042
     Dates: start: 20040331
  2. ZESTORETIC [Concomitant]
  3. CAMPTOSAR [Concomitant]
  4. FLUOROURACIL [Concomitant]
  5. LEUCOVORIN CALCIUM [Concomitant]

REACTIONS (1)
  - THROMBOEMBOLIC STROKE [None]
